FAERS Safety Report 7319624-7 (Version None)
Quarter: 2011Q1

REPORT INFORMATION
  Report Type: 
  Country: None (occurrence: None)
  Receive Date: 20110228
  Receipt Date: 20100617
  Transmission Date: 20110831
  Serious: No
  Sender: FDA-Public Use
  Company Number: A0865746A

PATIENT
  Age: 46 Year
  Sex: Female

DRUGS (3)
  1. LAMICTAL [Suspect]
     Indication: BIPOLAR DISORDER
     Dosage: 100MG PER DAY
     Route: 048
     Dates: start: 20100501
  2. CYMBALTA [Concomitant]
  3. FLEXERIL [Concomitant]

REACTIONS (5)
  - GLOSSODYNIA [None]
  - ORAL PAIN [None]
  - APHTHOUS STOMATITIS [None]
  - GINGIVAL PAIN [None]
  - TONGUE EXFOLIATION [None]
